FAERS Safety Report 8568184-1 (Version None)
Quarter: 2012Q3

REPORT INFORMATION
  Report Type: 
  Country: None (occurrence: None)
  Receive Date: 20120803
  Receipt Date: 20120716
  Transmission Date: 20120928
  Serious: No
  Sender: FDA-Public Use
  Company Number: US-ABBOTT-12P-163-0956223-00

PATIENT
  Sex: Male
  Weight: 71.732 kg

DRUGS (5)
  1. WARFARIN SODIUM [Concomitant]
     Indication: PRODUCT USED FOR UNKNOWN INDICATION
     Dosage: 5MG 4 DAYS A WEEK, 2.5MG 3 DAYS A WEEK
     Route: 048
  2. FLOMAX [Concomitant]
     Indication: PRODUCT USED FOR UNKNOWN INDICATION
     Route: 048
  3. AMIODARONE HCL [Concomitant]
     Indication: PRODUCT USED FOR UNKNOWN INDICATION
     Route: 048
  4. WARFARIN SODIUM [Concomitant]
  5. NIASPAN [Suspect]
     Indication: ARTERIOSCLEROSIS
     Dosage: 1 EVERY MORNING
     Route: 048
     Dates: start: 20120616

REACTIONS (5)
  - ERYTHEMA [None]
  - FLUSHING [None]
  - PRURITUS [None]
  - PARAESTHESIA [None]
  - FEELING HOT [None]
